FAERS Safety Report 13273341 (Version 3)
Quarter: 2017Q2

REPORT INFORMATION
  Report Type: Report from Study
  Country: US (occurrence: US)
  Receive Date: 20170227
  Receipt Date: 20170413
  Transmission Date: 20170830
  Serious: Yes (Other)
  Sender: FDA-Public Use
  Company Number: US-GILEAD-2017-0259279

PATIENT
  Age: 74 Year
  Sex: Female
  Weight: 35.83 kg

DRUGS (7)
  1. FOSRENOL [Concomitant]
     Active Substance: LANTHANUM CARBONATE
  2. CARDIZEM [Suspect]
     Active Substance: DILTIAZEM HYDROCHLORIDE
     Indication: PRODUCT USED FOR UNKNOWN INDICATION
     Route: 065
  3. FISH OIL [Concomitant]
     Active Substance: FISH OIL
  4. SILDENAFIL. [Suspect]
     Active Substance: SILDENAFIL
     Indication: PRODUCT USED FOR UNKNOWN INDICATION
     Route: 065
  5. AMBRISENTAN [Suspect]
     Active Substance: AMBRISENTAN
     Indication: PRODUCT USED FOR UNKNOWN INDICATION
     Dosage: 5 MG, QD
     Route: 065
     Dates: start: 20161207, end: 20170201
  6. AMBRISENTAN [Suspect]
     Active Substance: AMBRISENTAN
     Dosage: 5 MG, UNK
     Route: 065
     Dates: start: 20170227
  7. CLOPIDOGREL [Concomitant]
     Active Substance: CLOPIDOGREL BISULFATE

REACTIONS (9)
  - Hypotension [Unknown]
  - Unevaluable event [Unknown]
  - Swelling [Unknown]
  - Fatigue [Not Recovered/Not Resolved]
  - Heart rate irregular [Unknown]
  - Dialysis [Not Recovered/Not Resolved]
  - Erythema [Unknown]
  - General physical condition abnormal [Unknown]
  - Systemic lupus erythematosus [Not Recovered/Not Resolved]
